FAERS Safety Report 10183350 (Version 1)
Quarter: 2014Q2

REPORT INFORMATION
  Report Type: Spontaneous
  Country: JP (occurrence: JP)
  Receive Date: 20140520
  Receipt Date: 20140520
  Transmission Date: 20141212
  Serious: Yes (Other)
  Sender: FDA-Public Use
  Company Number: JP-PFIZER INC-2014135049

PATIENT
  Sex: Male

DRUGS (1)
  1. LYRICA [Suspect]
     Indication: PAIN
     Dosage: UNK
     Dates: start: 201404

REACTIONS (4)
  - Sleep apnoea syndrome [Unknown]
  - Abdominal discomfort [Unknown]
  - Snoring [Unknown]
  - Drug ineffective [Unknown]
